FAERS Safety Report 21583044 (Version 2)
Quarter: 2022Q4

REPORT INFORMATION
  Report Type: Report from Study
  Country: CN (occurrence: CN)
  Receive Date: 20221111
  Receipt Date: 20221115
  Transmission Date: 20230113
  Serious: Yes (Other)
  Sender: FDA-Public Use
  Company Number: CN-ROCHE-3214188

PATIENT

DRUGS (1)
  1. ERLOTINIB [Suspect]
     Active Substance: ERLOTINIB
     Indication: Non-small cell lung cancer
     Dosage: 250 MG, ONCE DAILY (250 MG/TIME FOR 2 WEEKS))
     Route: 048

REACTIONS (1)
  - Myelosuppression [Unknown]
